FAERS Safety Report 25178295 (Version 1)
Quarter: 2025Q2

REPORT INFORMATION
  Report Type: Spontaneous
  Country: US (occurrence: US)
  Receive Date: 20250409
  Receipt Date: 20250409
  Transmission Date: 20250717
  Serious: Yes (Disabling, Other)
  Sender: CHATTEM
  Company Number: US-OPELLA-2025OHG010153

PATIENT
  Age: 81 Year
  Sex: Male

DRUGS (1)
  1. GOLD BOND ORIGINAL STRENGTH [Suspect]
     Active Substance: MENTHOL
     Indication: Product used for unknown indication

REACTIONS (6)
  - Pleural mesothelioma [Unknown]
  - Renal neoplasm [Unknown]
  - Metastases to central nervous system [Unknown]
  - Pancreatic carcinoma [Unknown]
  - Parkinson^s disease [Unknown]
  - Dementia [Unknown]

NARRATIVE: CASE EVENT DATE: 20250217
